FAERS Safety Report 14113214 (Version 4)
Quarter: 2017Q4

REPORT INFORMATION
  Report Type: Spontaneous
  Country: JP (occurrence: JP)
  Receive Date: 20171023
  Receipt Date: 20171221
  Transmission Date: 20180321
  Serious: Yes (Hospitalization, Other)
  Sender: FDA-Public Use
  Company Number: PHJP2017JP031503

PATIENT
  Age: 70 Year
  Sex: Male
  Weight: 52.7 kg

DRUGS (2)
  1. VOTRIENT [Suspect]
     Active Substance: PAZOPANIB HYDROCHLORIDE
     Indication: METASTATIC RENAL CELL CARCINOMA
     Dosage: 600 MG, QD
     Route: 048
     Dates: start: 20170928, end: 20171013
  2. RANMARK [Concomitant]
     Active Substance: DENOSUMAB
     Indication: PRODUCT USED FOR UNKNOWN INDICATION
     Dosage: UNK
     Route: 065
     Dates: start: 20170810

REACTIONS (14)
  - Oedema peripheral [Recovering/Resolving]
  - Pyrexia [Recovered/Resolved]
  - Proteinuria [Unknown]
  - Erythema [Recovered/Resolved]
  - Malaise [Recovering/Resolving]
  - Blood sodium decreased [Recovered/Resolved]
  - Hypoaesthesia [Recovering/Resolving]
  - Diarrhoea [Recovering/Resolving]
  - Thirst [Unknown]
  - Concomitant disease aggravated [Recovering/Resolving]
  - Conjunctival hyperaemia [Recovering/Resolving]
  - Eyelid oedema [Recovering/Resolving]
  - Hypoproteinaemia [Unknown]
  - Platelet count decreased [Recovering/Resolving]

NARRATIVE: CASE EVENT DATE: 20171011
